FAERS Safety Report 13134142 (Version 11)
Quarter: 2017Q3

REPORT INFORMATION
  Report Type: Report from Study
  Country: US (occurrence: US)
  Receive Date: 20170120
  Receipt Date: 20170914
  Transmission Date: 20171127
  Serious: Yes (Other)
  Sender: FDA-Public Use
  Company Number: US-BAYER-2016-217898

PATIENT
  Age: 52 Year
  Sex: Female
  Weight: 111.11 kg

DRUGS (14)
  1. ADEMPAS [Suspect]
     Active Substance: RIOCIGUAT
     Indication: PULMONARY HYPERTENSION
     Dosage: UNK
     Dates: start: 20161027
  2. DULOXETINE HYDROCHLORIDE. [Concomitant]
     Active Substance: DULOXETINE HYDROCHLORIDE
     Dosage: UNK
     Dates: start: 20170602, end: 20170613
  3. ADEMPAS [Suspect]
     Active Substance: RIOCIGUAT
     Indication: PULMONARY HYPERTENSION
     Dosage: 0.5 MG, TID
     Route: 048
  4. ADEMPAS [Suspect]
     Active Substance: RIOCIGUAT
     Indication: PULMONARY HYPERTENSION
     Dosage: UNK
     Route: 048
     Dates: start: 20170202
  5. ADEMPAS [Suspect]
     Active Substance: RIOCIGUAT
     Indication: PULMONARY HYPERTENSION
     Dosage: 2.5 MG, TID
     Route: 048
  6. ADEMPAS [Suspect]
     Active Substance: RIOCIGUAT
     Indication: PULMONARY HYPERTENSION
     Dosage: 2.5 MG, TID
     Route: 048
  7. ADEMPAS [Suspect]
     Active Substance: RIOCIGUAT
     Indication: PULMONARY HYPERTENSION
     Dosage: 1 MG, TID
     Route: 048
  8. ADEMPAS [Suspect]
     Active Substance: RIOCIGUAT
     Indication: PULMONARY HYPERTENSION
     Dosage: 1.5 MG, TID
  9. ADEMPAS [Suspect]
     Active Substance: RIOCIGUAT
     Indication: PULMONARY HYPERTENSION
     Dosage: 2 MG, TID
     Route: 048
  10. ADEMPAS [Suspect]
     Active Substance: RIOCIGUAT
     Indication: PULMONARY HYPERTENSION
     Dosage: 2.5 MG, TID
     Route: 048
  11. LEFLUNOMIDE. [Concomitant]
     Active Substance: LEFLUNOMIDE
  12. ADEMPAS [Suspect]
     Active Substance: RIOCIGUAT
     Indication: PULMONARY HYPERTENSION
     Dosage: 0.5 MG, TID
     Route: 048
  13. ADEMPAS [Suspect]
     Active Substance: RIOCIGUAT
     Indication: PULMONARY HYPERTENSION
     Dosage: 1 MG, TID
     Route: 048
  14. OPSUMIT [Suspect]
     Active Substance: MACITENTAN
     Dosage: UNK

REACTIONS (37)
  - Diarrhoea [Recovered/Resolved]
  - Constipation [Unknown]
  - Dyspnoea [Unknown]
  - Dyspnoea exertional [Not Recovered/Not Resolved]
  - Catheterisation cardiac [None]
  - Drug dose omission [Unknown]
  - Pruritus [Not Recovered/Not Resolved]
  - Rheumatoid arthritis [Unknown]
  - Blood pressure immeasurable [Unknown]
  - Fatigue [Unknown]
  - Irritability [Unknown]
  - Oedema peripheral [Unknown]
  - Alopecia [Not Recovered/Not Resolved]
  - Limb injury [Recovered/Resolved]
  - Incorrect drug administration duration [Unknown]
  - Peripheral swelling [None]
  - Gout [None]
  - Inappropriate schedule of drug administration [Unknown]
  - Peripheral swelling [Unknown]
  - Product availability issue [None]
  - Depression [Unknown]
  - Rash generalised [None]
  - Rash [Not Recovered/Not Resolved]
  - Dyspnoea exertional [Unknown]
  - Rib fracture [Unknown]
  - Myalgia [Unknown]
  - Feeling hot [Unknown]
  - Pain in extremity [None]
  - Hypertension [Unknown]
  - Feeling abnormal [Unknown]
  - Anxiety [Unknown]
  - Frequent bowel movements [Unknown]
  - Rash pruritic [Not Recovered/Not Resolved]
  - Somnolence [Unknown]
  - Muscle strain [Unknown]
  - Blood pressure diastolic increased [Unknown]
  - Flatulence [Unknown]

NARRATIVE: CASE EVENT DATE: 20170223
